FAERS Safety Report 6888035-0 (Version None)
Quarter: 2010Q3

REPORT INFORMATION
  Report Type: 
  Country: None (occurrence: None)
  Receive Date: 20100730
  Receipt Date: 20100726
  Transmission Date: 20110219
  Serious: Yes (Hospitalization)
  Sender: FDA-Public Use
  Company Number: B0667305A

PATIENT
  Age: 37 Year
  Sex: Female

DRUGS (3)
  1. SERETIDE [Suspect]
     Indication: ASTHMA
     Dosage: 1000MCG PER DAY
     Route: 055
     Dates: start: 20090328, end: 20100724
  2. BIOFERMIN R [Concomitant]
     Dosage: 18MG PER DAY
     Route: 048
     Dates: start: 20100508, end: 20100514
  3. UNKNOWN DRUG [Concomitant]
     Dosage: 600MG PER DAY
     Route: 048

REACTIONS (1)
  - CYSTITIS [None]
